FAERS Safety Report 7421586-9 (Version None)
Quarter: 2011Q2

REPORT INFORMATION
  Report Type: 
  Country: None (occurrence: None)
  Receive Date: 20110418
  Receipt Date: 20110407
  Transmission Date: 20111010
  Serious: Yes (Other)
  Sender: FDA-Public Use
  Company Number: CHPA2011US05123

PATIENT
  Sex: Male
  Weight: 72.109 kg

DRUGS (2)
  1. MAALOX ANTACID/ANTIGAS RS LIQ COOL MINT [Suspect]
     Indication: DYSPEPSIA
     Dosage: 1/4 BOTTLE AT A TIME
     Route: 048
     Dates: start: 20110301
  2. GAS-X EXTRA STRENGTH SOFTGELS [Concomitant]
     Indication: FLATULENCE
     Dosage: 3 DF AT A TIME
     Route: 048

REACTIONS (6)
  - HAEMOPTYSIS [None]
  - THERAPEUTIC RESPONSE DECREASED [None]
  - DRUG INEFFECTIVE [None]
  - WRONG TECHNIQUE IN DRUG USAGE PROCESS [None]
  - DIARRHOEA [None]
  - OVERDOSE [None]
